FAERS Safety Report 8145737-6 (Version None)
Quarter: 2012Q1

REPORT INFORMATION
  Report Type: 
  Country: None (occurrence: None)
  Receive Date: 20120217
  Receipt Date: 20110317
  Transmission Date: 20120608
  Serious: No
  Sender: FDA-Public Use
  Company Number: US-ABBOTT-09P-163-0602095-00

PATIENT
  Sex: Female
  Weight: 72.64 kg

DRUGS (2)
  1. SIMCOR [Suspect]
     Indication: BLOOD CHOLESTEROL INCREASED
     Dosage: 500/20
     Route: 048
     Dates: start: 20090101
  2. SIMCOR [Suspect]
     Indication: BLOOD CHOLESTEROL ABNORMAL

REACTIONS (5)
  - ERYTHEMA [None]
  - PALPITATIONS [None]
  - PARAESTHESIA [None]
  - FLUSHING [None]
  - BURNING SENSATION [None]
